FAERS Safety Report 6454893-7 (Version None)
Quarter: 2009Q4

REPORT INFORMATION
  Report Type: 
  Country: None (occurrence: None)
  Receive Date: 20091124
  Receipt Date: 20091109
  Transmission Date: 20100525
  Serious: Yes (Death, Hospitalization, Other)
  Sender: FDA-Public Use
  Company Number: IT-GENENTECH-294435

PATIENT
  Age: 61 Year
  Sex: Male

DRUGS (15)
  1. RITUXIMAB [Suspect]
     Indication: MANTLE CELL LYMPHOMA
     Dosage: ONE COURSE
     Route: 065
     Dates: start: 20010301
  2. RITUXIMAB [Suspect]
     Dosage: ONE COURSE
     Route: 065
     Dates: start: 20010801
  3. RITUXIMAB [Suspect]
     Dosage: ONE COURSE
     Route: 065
     Dates: start: 20020101
  4. DOXORUBICIN HCL [Suspect]
     Indication: MANTLE CELL LYMPHOMA
     Dosage: UNK
     Route: 065
     Dates: start: 20010301
  5. PREDNISONE [Suspect]
     Indication: MANTLE CELL LYMPHOMA
     Dosage: UNK
     Route: 065
     Dates: start: 20010301
  6. VINCRISTINE [Suspect]
     Indication: MANTLE CELL LYMPHOMA
     Dosage: UNK
     Route: 065
     Dates: start: 20010301
  7. CYCLOPHOSPHAMIDE [Concomitant]
     Indication: MANTLE CELL LYMPHOMA
     Dosage: ONE COURSE
     Route: 065
     Dates: start: 20010301
  8. CYCLOPHOSPHAMIDE [Concomitant]
     Dosage: ONE COURSE
     Route: 065
     Dates: start: 20020101
  9. SULFAMETHOXAZOLE AND TRIMETHOPRIM [Suspect]
     Indication: PNEUMOCYSTIS JIROVECI PNEUMONIA
     Dosage: UNK
     Dates: start: 20070101
  10. DHAP [Suspect]
     Indication: DRUG USE FOR UNKNOWN INDICATION
     Dosage: 2 COURSES
     Route: 065
     Dates: start: 20010301
  11. ARA-C [Suspect]
     Indication: MANTLE CELL LYMPHOMA
     Dosage: ONE COURSE
     Route: 065
     Dates: start: 20010801
  12. ARA-C [Suspect]
     Dosage: UNK
     Route: 065
     Dates: start: 20020501
  13. CARMUSTINE [Suspect]
     Indication: MANTLE CELL LYMPHOMA
     Dosage: UNK
     Route: 065
     Dates: start: 20020501
  14. ETOPOSIDE [Concomitant]
     Indication: MANTLE CELL LYMPHOMA
     Dosage: UNK
     Route: 065
     Dates: start: 20020501
  15. MELPHALAN [Suspect]
     Indication: MANTLE CELL LYMPHOMA
     Dosage: UNK
     Route: 065
     Dates: start: 20020501

REACTIONS (14)
  - ABDOMINAL PAIN [None]
  - ASTHENIA [None]
  - BONE PAIN [None]
  - CARDIAC FAILURE [None]
  - EPISTAXIS [None]
  - FATIGUE [None]
  - GINGIVAL BLEEDING [None]
  - INFLAMMATORY MYOFIBROBLASTIC TUMOUR [None]
  - LUNG INFECTION PSEUDOMONAL [None]
  - MYELODYSPLASTIC SYNDROME [None]
  - PNEUMOCYSTIS JIROVECI PNEUMONIA [None]
  - PURPURA [None]
  - PYREXIA [None]
  - WEIGHT DECREASED [None]
